FAERS Safety Report 13962285 (Version 2)
Quarter: 2017Q4

REPORT INFORMATION
  Report Type: Spontaneous
  Country: HR (occurrence: HR)
  Receive Date: 20170912
  Receipt Date: 20171108
  Transmission Date: 20180320
  Serious: Yes (Hospitalization)
  Sender: FDA-Public Use
  Company Number: HR-BAXTER-2017BAX031734

PATIENT
  Age: 60 Year
  Sex: Female
  Weight: 65 kg

DRUGS (4)
  1. RANITIDINE. [Suspect]
     Active Substance: RANITIDINE
     Indication: DRUG THERAPY
     Dosage: DOSE RE-INTRODUCED
     Route: 042
  2. NATRIJEV KLORID 0,9% VIAFLO, OTOPINA ZA INFUZIJU [Suspect]
     Active Substance: SODIUM CHLORIDE
     Indication: MEDICATION DILUTION
     Dosage: DOSE RE-INTRODUCED
     Route: 042
  3. RANITIDINE. [Suspect]
     Active Substance: RANITIDINE
     Indication: DISCOMFORT
     Dosage: PHARMACEUTICAL FORM: LIQUIDS, SUSPENSIONS; 50 MG (1 AMP) COMPOUNDED WITH 500 ML PHYSIOLOGICAL SOLUTI
     Route: 042
     Dates: start: 20170824, end: 20170824
  4. NATRIJEV KLORID 0,9% VIAFLO, OTOPINA ZA INFUZIJU [Suspect]
     Active Substance: SODIUM CHLORIDE
     Indication: FLUID REPLACEMENT
     Dosage: DOSAGE FORM: INFUSION AMPOULES, BAGS. DOSE: 20 TO 30 ML OF COMPOUNDED INFUSION THERAPY. VOLUME: 500
     Route: 042
     Dates: start: 20170824, end: 20170824

REACTIONS (8)
  - Angioedema [Recovered/Resolved]
  - Soft tissue swelling [Unknown]
  - Dyspnoea [Recovered/Resolved]
  - Hypoaesthesia oral [Recovered/Resolved]
  - Lacrimation increased [Recovered/Resolved]
  - Ocular hyperaemia [Recovered/Resolved]
  - Erythema [Recovered/Resolved]
  - Eyelid oedema [Recovered/Resolved]

NARRATIVE: CASE EVENT DATE: 20170824
